FAERS Safety Report 9236603 (Version 2)
Quarter: 2013Q4

REPORT INFORMATION
  Report Type: Spontaneous
  Country: FR (occurrence: FR)
  Receive Date: 20130417
  Receipt Date: 20131105
  Transmission Date: 20140711
  Serious: Yes (Hospitalization)
  Sender: FDA-Public Use
  Company Number: FR-US-EMD SERONO, INC.-7205012

PATIENT
  Age: 35 Year
  Sex: Female

DRUGS (4)
  1. OVITRELLE [Suspect]
     Indication: IN VITRO FERTILISATION
     Route: 058
     Dates: start: 20130106, end: 20130106
  2. PUREGON /01348901/ [Suspect]
     Indication: IN VITRO FERTILISATION
     Route: 058
     Dates: start: 20121227, end: 20130105
  3. SYNAREL [Suspect]
     Indication: IN VITRO FERTILISATION
     Route: 045
     Dates: start: 20121212, end: 20130105
  4. PROGESTAN [Concomitant]
     Indication: PRODUCT USED FOR UNKNOWN INDICATION
     Route: 019
     Dates: start: 20130110

REACTIONS (2)
  - Ovarian hyperstimulation syndrome [Recovered/Resolved]
  - Jugular vein thrombosis [Recovered/Resolved]
